FAERS Safety Report 8741111 (Version 7)
Quarter: 2017Q4

REPORT INFORMATION
  Report Type: Spontaneous
  Country: US (occurrence: US)
  Receive Date: 20120824
  Receipt Date: 20171017
  Transmission Date: 20180321
  Serious: Yes (Hospitalization)
  Sender: FDA-Public Use
  Company Number: US-ASTRAZENECA-2011SE75544

PATIENT
  Age: 51 Year
  Sex: Female

DRUGS (8)
  1. SYMBICORT [Suspect]
     Active Substance: BUDESONIDE\FORMOTEROL FUMARATE DIHYDRATE
     Indication: CHRONIC OBSTRUCTIVE PULMONARY DISEASE
     Dosage: 160/4.5 MCG ONE INHALATIONS TWO TIMES A DAY
     Route: 055
  2. SYMBICORT [Suspect]
     Active Substance: BUDESONIDE\FORMOTEROL FUMARATE DIHYDRATE
     Indication: ASTHMA
     Dosage: 160/4.5 MCG TWO INHALATIONS TWO TIMES A DAY
     Route: 055
     Dates: start: 2007
  3. SYMBICORT [Suspect]
     Active Substance: BUDESONIDE\FORMOTEROL FUMARATE DIHYDRATE
     Indication: CHRONIC OBSTRUCTIVE PULMONARY DISEASE
     Dosage: 160/4.5 MCG TWO INHALATIONS TWO TIMES A DAY
     Route: 055
     Dates: start: 2007
  4. SYMBICORT [Suspect]
     Active Substance: BUDESONIDE\FORMOTEROL FUMARATE DIHYDRATE
     Indication: ASTHMA
     Dosage: 160/4.5 MCG ONE INHALATIONS TWO TIMES A DAY
     Route: 055
  5. ALBUTEROL. [Concomitant]
     Active Substance: ALBUTEROL
     Indication: SUPPLEMENTATION THERAPY
     Dosage: AS REQUIRED
     Route: 055
  6. SYMBICORT [Suspect]
     Active Substance: BUDESONIDE\FORMOTEROL FUMARATE DIHYDRATE
     Indication: CHRONIC OBSTRUCTIVE PULMONARY DISEASE
     Dosage: 160/4.5 MICROGRAMS, TWO PUFFS, TWO TIMES A DAY
     Route: 055
  7. OXYGEN. [Concomitant]
     Active Substance: OXYGEN
     Indication: DYSPNOEA
     Route: 045
  8. SYMBICORT [Suspect]
     Active Substance: BUDESONIDE\FORMOTEROL FUMARATE DIHYDRATE
     Indication: ASTHMA
     Dosage: 160/4.5 MICROGRAMS, TWO PUFFS, TWO TIMES A DAY
     Route: 055

REACTIONS (19)
  - Dyspnoea [Not Recovered/Not Resolved]
  - Malaise [Unknown]
  - Loss of personal independence in daily activities [Not Recovered/Not Resolved]
  - Type 2 diabetes mellitus [Unknown]
  - Insurance issue [Recovering/Resolving]
  - Sleep apnoea syndrome [Unknown]
  - Syncope [Not Recovered/Not Resolved]
  - Nervousness [Not Recovered/Not Resolved]
  - Sinus pain [Unknown]
  - Condition aggravated [Not Recovered/Not Resolved]
  - Asthma [Unknown]
  - Upper respiratory tract infection [Unknown]
  - Intentional product use issue [Unknown]
  - Drug dose omission [Unknown]
  - Chronic obstructive pulmonary disease [Not Recovered/Not Resolved]
  - Influenza [Unknown]
  - Overweight [Not Recovered/Not Resolved]
  - Speech disorder [Unknown]
  - Cyst [Unknown]
